FAERS Safety Report 4294519-4 (Version None)
Quarter: 2004Q1

REPORT INFORMATION
  Report Type: 
  Country: None (occurrence: None)
  Receive Date: 20040211
  Receipt Date: 20040130
  Transmission Date: 20041129
  Serious: No
  Sender: FDA-Public Use
  Company Number: 2002SE05349

PATIENT
  Sex: Female

DRUGS (6)
  1. ACCOLATE [Suspect]
     Indication: ASTHMA
     Dosage: 20 MG BID
     Dates: start: 19980901, end: 19981204
  2. VENTOLIN [Concomitant]
  3. MOTILIUM [Concomitant]
  4. FLIXOTIDE [Concomitant]
  5. DAKAR [Concomitant]
  6. MAALOX [Concomitant]

REACTIONS (4)
  - CARDIAC FAILURE [None]
  - GASTROINTESTINAL DISORDER [None]
  - HEPATIC STEATOSIS [None]
  - HYPERCHOLESTEROLAEMIA [None]
